FAERS Safety Report 7334384-1 (Version None)
Quarter: 2011Q1

REPORT INFORMATION
  Report Type: 
  Country: None (occurrence: None)
  Receive Date: 20110307
  Receipt Date: 20110222
  Transmission Date: 20110831
  Serious: Yes (Other)
  Sender: FDA-Public Use
  Company Number: PHHY2010US85023

PATIENT
  Sex: Female
  Weight: 77.551 kg

DRUGS (2)
  1. EXTAVIA [Suspect]
     Indication: MULTIPLE SCLEROSIS
     Dosage: 0.25 MG, QOD
     Route: 058
     Dates: start: 20100301
  2. IBUPROFEN [Concomitant]

REACTIONS (4)
  - INJECTION SITE SCAR [None]
  - STAPHYLOCOCCAL INFECTION [None]
  - INJECTION SITE VESICLES [None]
  - INJECTION SITE HAEMATOMA [None]
